FAERS Safety Report 10199563 (Version 1)
Quarter: 2014Q2

REPORT INFORMATION
  Report Type: Spontaneous
  Country: US (occurrence: US)
  Receive Date: 20140527
  Receipt Date: 20140527
  Transmission Date: 20141212
  Serious: No
  Sender: FDA-Public Use
  Company Number: US-NOVEN-14US009120

PATIENT
  Age: 6 Year
  Sex: Female
  Weight: 15.42 kg

DRUGS (2)
  1. DAYTRANA [Suspect]
     Indication: ATTENTION DEFICIT/HYPERACTIVITY DISORDER
     Dosage: 20 MG, UNK
     Route: 062
     Dates: start: 201308
  2. CYPROHEPTADINE [Concomitant]
     Indication: DECREASED APPETITE
     Dosage: 4 MG, UNK
     Route: 048

REACTIONS (3)
  - Restlessness [Recovered/Resolved]
  - Disturbance in social behaviour [Recovered/Resolved]
  - Agitation [Recovered/Resolved]
